FAERS Safety Report 15171013 (Version 1)
Quarter: 2018Q3

REPORT INFORMATION
  Report Type: Spontaneous
  Country: CA (occurrence: CA)
  Receive Date: 20180720
  Receipt Date: 20180720
  Transmission Date: 20181010
  Serious: Yes (Death)
  Sender: FDA-Public Use
  Company Number: CA-TEVA-2018-CA-925523

PATIENT
  Age: 25 Year
  Sex: Female
  Weight: 40 kg

DRUGS (2)
  1. CEFAZOLIN [Suspect]
     Active Substance: CEFAZOLIN
     Indication: BURN INFECTION
  2. CEFAZOLIN [Suspect]
     Active Substance: CEFAZOLIN
     Indication: CELLULITIS
     Route: 042

REACTIONS (2)
  - Anaphylactic reaction [Fatal]
  - Cardiac arrest [Fatal]
